FAERS Safety Report 8500259-5 (Version None)
Quarter: 2012Q3

REPORT INFORMATION
  Report Type: 
  Country: None (occurrence: None)
  Receive Date: 20120710
  Receipt Date: 20120705
  Transmission Date: 20120928
  Serious: Yes (Hospitalization)
  Sender: FDA-Public Use
  Company Number: FR-PFIZER INC-2012160883

PATIENT
  Age: 76 Year
  Sex: Female

DRUGS (6)
  1. CIPROFLOXACIN HYDROCHLORIDE [Suspect]
     Indication: PSEUDOMONAS INFECTION
     Dosage: 750 MG, 2X/DAY
     Route: 048
     Dates: start: 20120615, end: 20120618
  2. PREDNISONE TAB [Suspect]
     Dosage: 5 MG A DAY
     Route: 048
     Dates: start: 20120615
  3. FRAGMIN [Suspect]
     Indication: THROMBOSIS PROPHYLAXIS
     Dosage: 5000 IU DAILY
     Route: 042
     Dates: start: 20120615
  4. FERROUS SULFATE TAB [Suspect]
     Indication: IRON DEFICIENCY ANAEMIA
     Dosage: 1 DF, 1X/DAY
     Route: 048
     Dates: start: 20120615
  5. CALCIUM CARBONATE [Suspect]
     Indication: VITAMIN D DEFICIENCY
     Dosage: 2 TABLETS A DAY
     Route: 048
     Dates: start: 20120615
  6. TAZOBACTAM [Suspect]
     Indication: PSEUDOMONAS INFECTION
     Dosage: 4 G, 3X/DAY
     Route: 042
     Dates: start: 20120615

REACTIONS (1)
  - LIVER INJURY [None]
